FAERS Safety Report 5109822-5 (Version None)
Quarter: 2006Q3

REPORT INFORMATION
  Report Type: 
  Country: None (occurrence: None)
  Receive Date: 20060918
  Receipt Date: 20060918
  Transmission Date: 20061208
  Serious: Yes (Hospitalization, Other)
  Sender: FDA-Public Use
  Company Number: None

PATIENT
  Age: 49 Year
  Sex: Female
  Weight: 79.3795 kg

DRUGS (1)
  1. ALTACE [Suspect]
     Indication: DIABETES MELLITUS
     Dosage: ONE DAILY PO
     Route: 048
     Dates: start: 20060409, end: 20060611

REACTIONS (1)
  - OCULAR ICTERUS [None]
